FAERS Safety Report 15961517 (Version 1)
Quarter: 2019Q1

REPORT INFORMATION
  Report Type: Spontaneous
  Country: IT (occurrence: IT)
  Receive Date: 20190214
  Receipt Date: 20190214
  Transmission Date: 20190417
  Serious: Yes (Hospitalization)
  Sender: FDA-Public Use
  Company Number: IT-TESAROUBC-2019-TSO00879-IT

PATIENT

DRUGS (1)
  1. ZEJULA [Suspect]
     Active Substance: NIRAPARIB
     Indication: OVARIAN CANCER RECURRENT
     Dosage: 200 MG, QD
     Route: 048
     Dates: start: 20180915, end: 20190124

REACTIONS (2)
  - Epistaxis [Recovered/Resolved with Sequelae]
  - Petechiae [Recovered/Resolved with Sequelae]

NARRATIVE: CASE EVENT DATE: 20190124
